FAERS Safety Report 7585059-5 (Version None)
Quarter: 2011Q2

REPORT INFORMATION
  Report Type: 
  Country: None (occurrence: None)
  Receive Date: 20110630
  Receipt Date: 20110621
  Transmission Date: 20111010
  Serious: Yes (Other)
  Sender: FDA-Public Use
  Company Number: JP-ASTRAZENECA-2011SE37763

PATIENT
  Age: 70 Year
  Sex: Female

DRUGS (2)
  1. XYLOCAINE [Suspect]
     Indication: NERVE BLOCK
     Route: 053
  2. ADRENAL HORMONE PREPARATIONS [Concomitant]
     Indication: NERVE BLOCK
     Dosage: DOSE UNKNOWN
     Route: 053

REACTIONS (2)
  - SWELLING [None]
  - RASH [None]
